FAERS Safety Report 7012619-2 (Version None)
Quarter: 2010Q3

REPORT INFORMATION
  Report Type: 
  Country: None (occurrence: None)
  Receive Date: 20100924
  Receipt Date: 20100916
  Transmission Date: 20110219
  Serious: Yes (Other)
  Sender: FDA-Public Use
  Company Number: GR-ROCHE-665182

PATIENT

DRUGS (3)
  1. CAPECITABINE [Suspect]
     Dosage: ON DAYS 1-7 EVERY TWO WEEK FOR 134 CYCLES.
     Route: 065
  2. BEVACIZUMAB [Suspect]
     Route: 065
  3. L-OHP [Suspect]
     Dosage: ON DAY ONE FOR 134 CYCLES.
     Route: 065

REACTIONS (4)
  - DIARRHOEA [None]
  - FATIGUE [None]
  - NEUROTOXICITY [None]
  - NEUTROPENIA [None]
